FAERS Safety Report 19812783 (Version 1)
Quarter: 2021Q3

REPORT INFORMATION
  Report Type: Spontaneous
  Country: CN (occurrence: CN)
  Receive Date: 20210910
  Receipt Date: 20210910
  Transmission Date: 20211014
  Serious: Yes (Other)
  Sender: FDA-Public Use
  Company Number: CN-GLAXOSMITHKLINE-CN2021APC191086

PATIENT
  Age: 34 Year
  Sex: Female
  Weight: 55 kg

DRUGS (1)
  1. LAMOTRIGINE. [Suspect]
     Active Substance: LAMOTRIGINE
     Indication: MOOD ALTERED
     Dosage: 25 MG, QD
     Route: 048
     Dates: start: 20210712, end: 20210726

REACTIONS (7)
  - Rash erythematous [Recovering/Resolving]
  - Swelling face [Recovering/Resolving]
  - Pharyngeal erythema [Recovering/Resolving]
  - Rash [Recovering/Resolving]
  - Tenderness [Recovering/Resolving]
  - Peritonsillar abscess [Recovering/Resolving]
  - Reduced facial expression [Recovering/Resolving]

NARRATIVE: CASE EVENT DATE: 20210726
